FAERS Safety Report 4591413-6 (Version None)
Quarter: 2005Q1

REPORT INFORMATION
  Report Type: 
  Country: None (occurrence: None)
  Receive Date: 20050222
  Receipt Date: 20050207
  Transmission Date: 20050727
  Serious: Yes (Hospitalization)
  Sender: FDA-Public Use
  Company Number: 2005026143

PATIENT
  Sex: Female

DRUGS (4)
  1. DIFLUCAN [Suspect]
     Indication: ILL-DEFINED DISORDER
     Dosage: ORAL
     Route: 048
     Dates: start: 20050113, end: 20050113
  2. TIZANIDINE HCL [Suspect]
     Indication: ILL-DEFINED DISORDER
     Dosage: 16 MG (4 MG, 1 IN 1 D),ORAL
     Route: 048
     Dates: start: 20050113, end: 20050113
  3. ZOLMITRIPTAN (ZOLMITRIPTAN) [Suspect]
     Indication: ILL-DEFINED DISORDER
     Dosage: 10 MG (2.5 MG, 1 IN 1 D), ORAL
     Route: 048
     Dates: start: 20050113, end: 20050113
  4. BENZODIAZEPINE DERIVATIVES (BENZODIAZEPINE DERIVATIVES) [Suspect]
     Indication: ILL-DEFINED DISORDER

REACTIONS (6)
  - DISSOCIATIVE DISORDER [None]
  - DRUG ABUSER [None]
  - HEART RATE INCREASED [None]
  - MUSCLE CONTRACTURE [None]
  - SOMNOLENCE [None]
  - STUPOR [None]
